FAERS Safety Report 17182185 (Version 2)
Quarter: 2019Q4

REPORT INFORMATION
  Report Type: Spontaneous
  Country: PT (occurrence: PT)
  Receive Date: 20191219
  Receipt Date: 20191231
  Transmission Date: 20200122
  Serious: Yes (Other)
  Sender: FDA-Public Use
  Company Number: PT-JNJFOC-20191144040

PATIENT
  Age: 44 Year
  Sex: Female

DRUGS (5)
  1. PROPRANOLOL [Suspect]
     Active Substance: PROPRANOLOL HYDROCHLORIDE
     Indication: MIGRAINE WITH AURA
     Route: 065
  2. BOTULINUM TOXIN [Suspect]
     Active Substance: BOTULINUM TOXIN NOS
     Indication: MIGRAINE WITH AURA
     Route: 065
  3. TOPAMAX [Suspect]
     Active Substance: TOPIRAMATE
     Indication: MIGRAINE WITH AURA
     Route: 048
  4. AMITRIPTYLINE [Suspect]
     Active Substance: AMITRIPTYLINE
     Indication: MIGRAINE WITH AURA
     Route: 065
  5. SIBELIUM (FLUNARIZINE) [Suspect]
     Active Substance: FLUNARIZINE
     Indication: MIGRAINE WITH AURA
     Route: 065

REACTIONS (4)
  - Hypoacusis [Unknown]
  - Vertigo [Recovering/Resolving]
  - Drug intolerance [Unknown]
  - Tinnitus [Unknown]
